FAERS Safety Report 9347459 (Version 3)
Quarter: 2013Q3

REPORT INFORMATION
  Report Type: Spontaneous
  Country: FR (occurrence: FR)
  Receive Date: 20130614
  Receipt Date: 20130816
  Transmission Date: 20140515
  Serious: Yes (Death, Hospitalization)
  Sender: FDA-Public Use
  Company Number: FR-B.I. PHARMACEUTICALS,INC./RIDGEFIELD-2013-FF-01628FF

PATIENT
  Age: 72 Year
  Sex: Female

DRUGS (3)
  1. PRADAXA [Suspect]
     Dosage: 300 MG
     Route: 048
     Dates: start: 20130318, end: 20130430
  2. FUROSEMIDE [Suspect]
     Dates: start: 20130408, end: 20130430
  3. TOPALGIC [Suspect]
     Dates: start: 20130416, end: 20130430

REACTIONS (4)
  - Pneumonia aspiration [Fatal]
  - Septic shock [Fatal]
  - Cardiac arrest [Fatal]
  - Toxic epidermal necrolysis [Unknown]
